FAERS Safety Report 6900898-9 (Version None)
Quarter: 2010Q3

REPORT INFORMATION
  Report Type: 
  Country: None (occurrence: None)
  Receive Date: 20100803
  Receipt Date: 20100726
  Transmission Date: 20110219
  Serious: Yes (Other)
  Sender: FDA-Public Use
  Company Number: A0872340A

PATIENT
  Age: 52 Year
  Sex: Female

DRUGS (3)
  1. ADVAIR DISKUS 100/50 [Suspect]
     Dosage: 1PUFF PER DAY
     Route: 048
     Dates: start: 20080101
  2. SINGULAIR [Concomitant]
  3. XOPENEX [Concomitant]

REACTIONS (4)
  - ASTHENIA [None]
  - ASTHMA [None]
  - COUGH [None]
  - PRODUCT QUALITY ISSUE [None]
